FAERS Safety Report 10565769 (Version 2)
Quarter: 2014Q4

REPORT INFORMATION
  Report Type: Spontaneous
  Country: GB (occurrence: GB)
  Receive Date: 20141105
  Receipt Date: 20141203
  Transmission Date: 20150529
  Serious: Yes (Other)
  Sender: FDA-Public Use
  Company Number: GB-TEVA-518366ISR

PATIENT
  Age: 75 Year
  Sex: Female
  Weight: 57 kg

DRUGS (4)
  1. AMITRIPTYLINE [Suspect]
     Active Substance: AMITRIPTYLINE
     Dosage: UNK
  2. LYRICA [Suspect]
     Active Substance: PREGABALIN
     Indication: PAIN
     Route: 048
     Dates: start: 20140225
  3. LYRICA [Suspect]
     Active Substance: PREGABALIN
     Indication: NEURALGIA
     Dosage: 25MG DAILY OR 50MG DAILY
     Route: 048
     Dates: start: 20140225
  4. GABAPENTIN. [Suspect]
     Active Substance: GABAPENTIN
     Dosage: UNK

REACTIONS (22)
  - Drug dependence [Unknown]
  - Back pain [Unknown]
  - Pain [Unknown]
  - Lip swelling [Unknown]
  - Vision blurred [Unknown]
  - Loss of consciousness [Unknown]
  - Rash [Unknown]
  - Constipation [Unknown]
  - Arthralgia [Unknown]
  - Headache [Not Recovered/Not Resolved]
  - Dizziness [Unknown]
  - Memory impairment [Unknown]
  - Malaise [Unknown]
  - Asthenia [Unknown]
  - Crying [Unknown]
  - Agitation [Unknown]
  - Feeling abnormal [Unknown]
  - Swelling face [Unknown]
  - Pain in extremity [Unknown]
  - Thinking abnormal [Unknown]
  - Feeling of despair [Unknown]
  - Myalgia [Unknown]

NARRATIVE: CASE EVENT DATE: 2014
